FAERS Safety Report 7620770-9 (Version None)
Quarter: 2011Q3

REPORT INFORMATION
  Report Type: 
  Country: None (occurrence: None)
  Receive Date: 20110719
  Receipt Date: 20110709
  Transmission Date: 20111222
  Serious: Yes (Death)
  Sender: FDA-Public Use
  Company Number: DE-ALEXION-A201100853

PATIENT
  Sex: Female

DRUGS (3)
  1. HEPARIN [Concomitant]
     Route: 042
  2. SOLIRIS [Suspect]
     Indication: HAEMOLYTIC URAEMIC SYNDROME
     Dosage: 900 MG UNK
     Route: 042
     Dates: start: 20110528
  3. SOLIRIS [Suspect]
     Dosage: 600 MG UNK
     Route: 042
     Dates: start: 20110601, end: 20110605

REACTIONS (2)
  - CEREBRAL HAEMORRHAGE [None]
  - BRAIN OEDEMA [None]
